FAERS Safety Report 17010162 (Version 8)
Quarter: 2021Q3

REPORT INFORMATION
  Report Type: Report from Study
  Country: DE (occurrence: DE)
  Receive Date: 20191108
  Receipt Date: 20210903
  Transmission Date: 20211014
  Serious: Yes (Hospitalization, Other)
  Sender: FDA-Public Use
  Company Number: DE-MYLANLABS-2019M1106223

PATIENT
  Age: 50 Year
  Sex: Female

DRUGS (28)
  1. DICLOFENAC [Suspect]
     Active Substance: DICLOFENAC
     Indication: ARTHRALGIA
  2. AMITRIPTYLINE HYDROCHLORIDE. [Suspect]
     Active Substance: AMITRIPTYLINE HYDROCHLORIDE
     Dosage: UNK, (0?0?1)
  3. SELENIUM [Concomitant]
     Active Substance: SELENIUM
     Dosage: UNK, QD
  4. DEKRISTOL [Concomitant]
     Active Substance: CHOLECALCIFEROL
     Dosage: 20000 INTERNATIONAL UNIT, QW
  5. MAGNESIUM [Concomitant]
     Active Substance: MAGNESIUM
     Indication: MUSCLE SPASMS
     Dosage: 400 MILLIGRAM, QD
  6. DICLOFENAC [Suspect]
     Active Substance: DICLOFENAC
     Indication: BACK PAIN
     Dosage: 100 MILLIGRAM, QD
     Route: 054
     Dates: start: 20190122
  7. OCREVUS [Suspect]
     Active Substance: OCRELIZUMAB
     Dosage: 300 MILLIGRAM, (SECOND DOSE)
     Route: 042
     Dates: start: 20180517, end: 20180517
  8. RAMIPRIL. [Concomitant]
     Active Substance: RAMIPRIL
     Indication: HYPERTENSION
     Dosage: 10 MILLIGRAM, QD,  (1?0?1)
  9. BACLOFENUM [Concomitant]
     Dosage: UNK, (15 MG ? 15 MG ? 25 MG), 0.33 DAY
     Route: 048
  10. OCREVUS [Suspect]
     Active Substance: OCRELIZUMAB
     Indication: RELAPSING-REMITTING MULTIPLE SCLEROSIS
     Dosage: 300 MILLIGRAM
     Route: 042
     Dates: start: 20180503, end: 20180503
  11. OCREVUS [Suspect]
     Active Substance: OCRELIZUMAB
     Dosage: 600 MILLIGRAM, (NEXT DOSE ON 09/JUN/2020)
     Route: 042
     Dates: start: 20181106
  12. PANTOPRAZOL                        /01263201/ [Concomitant]
     Active Substance: PANTOPRAZOLE
     Dosage: 40 MILLIGRAM, QD
  13. RAMIPRIL. [Concomitant]
     Active Substance: RAMIPRIL
     Dosage: 2.5 MILLIGRAM, QD, (1?0?0)
  14. FOLVERLAN [Concomitant]
     Active Substance: FOLIC ACID
     Dosage: 0.4 MILLIGRAM, QD
  15. FOLSAN [Concomitant]
     Active Substance: FOLIC ACID
     Dosage: 5 MILLIGRAM, QD
  16. NOVOPULMON [Concomitant]
     Active Substance: BUDESONIDE
     Dosage: 2 HUBS PER DAY
  17. ACICLOVIR [Concomitant]
     Active Substance: ACYCLOVIR
     Dosage: 1?0?1 FOR FOUR WEEKS
  18. AMITRIPTYLINE HYDROCHLORIDE. [Suspect]
     Active Substance: AMITRIPTYLINE HYDROCHLORIDE
     Indication: PRODUCT USED FOR UNKNOWN INDICATION
     Dosage: 50 MILLIGRAM, QD
  19. OCREVUS [Suspect]
     Active Substance: OCRELIZUMAB
     Dosage: 600 MILLIGRAM
     Route: 042
     Dates: start: 20201207
  20. CARBAMAZEPINE. [Concomitant]
     Active Substance: CARBAMAZEPINE
     Dosage: 400 MILLIGRAM, QD, 1?0?0
     Route: 048
  21. BACLOFENUM [Concomitant]
     Dosage: 75 MILLIGRAM, QD
  22. ASPIRIN. [Concomitant]
     Active Substance: ASPIRIN
     Dosage: 100 MILLIGRAM, QD
     Route: 048
  23. CARBAMAZEPINE. [Concomitant]
     Active Substance: CARBAMAZEPINE
     Dosage: 400 MILLIGRAM, QD, (2?0?1)
     Dates: start: 20190801
  24. CARBAMAZEPINE. [Concomitant]
     Active Substance: CARBAMAZEPINE
     Dosage: 400 MILLIGRAM, QD, (0?1?0)
  25. BACLOFENUM [Concomitant]
     Dosage: UNK, (10 MG ? 15 MG ? 25 MG), 0.33 DAY
  26. BACLOFENUM [Concomitant]
     Dosage: 25 MILLIGRAM, (0.33 DAY)
  27. AMITRIPTYLINE HYDROCHLORIDE. [Suspect]
     Active Substance: AMITRIPTYLINE HYDROCHLORIDE
     Dosage: 10 MILLIGRAM, QD
  28. OCREVUS [Suspect]
     Active Substance: OCRELIZUMAB
     Dosage: 600 MILLIGRAM
     Route: 042
     Dates: start: 20200609

REACTIONS (41)
  - Chest discomfort [Not Recovered/Not Resolved]
  - Drug ineffective [Unknown]
  - Chondropathy [Not Recovered/Not Resolved]
  - Spinal stenosis [Not Recovered/Not Resolved]
  - Acquired diaphragmatic eventration [Not Recovered/Not Resolved]
  - Nausea [Recovered/Resolved]
  - Herpes virus infection [Recovered/Resolved]
  - Muscle spasticity [Not Recovered/Not Resolved]
  - Fatigue [Recovered/Resolved]
  - Paraesthesia [Recovered/Resolved]
  - Pruritus [Recovered/Resolved]
  - Sacroiliitis [Not Recovered/Not Resolved]
  - Effusion [Not Recovered/Not Resolved]
  - Gastroenteritis norovirus [Recovered/Resolved]
  - Infusion related reaction [Recovered/Resolved]
  - Nasopharyngitis [Not Recovered/Not Resolved]
  - Migraine [Not Recovered/Not Resolved]
  - Insomnia [Recovered/Resolved]
  - Headache [Recovered/Resolved]
  - Urticaria [Recovered/Resolved]
  - Terminal insomnia [Recovering/Resolving]
  - Therapeutic product effect decreased [Recovered/Resolved]
  - Skin laceration [Recovered/Resolved]
  - Meniscus injury [Recovered/Resolved]
  - C-reactive protein increased [Recovering/Resolving]
  - Cholelithiasis [Recovered/Resolved]
  - Arthralgia [Not Recovered/Not Resolved]
  - Dyspnoea [Not Recovered/Not Resolved]
  - Sleep disorder [Not Recovered/Not Resolved]
  - Neuralgia [Recovered/Resolved]
  - Osteoarthritis [Not Recovered/Not Resolved]
  - Memory impairment [Recovered/Resolved]
  - Dizziness [Recovered/Resolved]
  - Rash [Recovered/Resolved]
  - Feeling abnormal [Not Recovered/Not Resolved]
  - Back pain [Recovered/Resolved]
  - Multiple sclerosis [Not Recovered/Not Resolved]
  - Infection [Recovered/Resolved]
  - Dyspepsia [Not Recovered/Not Resolved]
  - Abdominal pain upper [Recovered/Resolved]
  - Joint arthroplasty [Recovered/Resolved]

NARRATIVE: CASE EVENT DATE: 20180503
